FAERS Safety Report 15750075 (Version 1)
Quarter: 2018Q4

REPORT INFORMATION
  Report Type: Spontaneous
  Country: CN (occurrence: CN)
  Receive Date: 20181221
  Receipt Date: 20181221
  Transmission Date: 20190205
  Serious: Yes (Death, Other)
  Sender: FDA-Public Use
  Company Number: CN-ASTRAZENECA-2018SF64417

PATIENT
  Age: 59 Year
  Sex: Male

DRUGS (2)
  1. OLAPARIB. [Suspect]
     Active Substance: OLAPARIB
     Indication: ACINAR CELL CARCINOMA OF PANCREAS
     Route: 048
     Dates: start: 20170919, end: 20171020
  2. OLAPARIB. [Suspect]
     Active Substance: OLAPARIB
     Indication: ACINAR CELL CARCINOMA OF PANCREAS
     Route: 048
     Dates: start: 20170812, end: 20170918

REACTIONS (5)
  - Bone marrow failure [Unknown]
  - Abdominal pain [Unknown]
  - Asthenia [Unknown]
  - Product use in unapproved indication [Unknown]
  - Off label use [Unknown]
